FAERS Safety Report 6615259-X (Version None)
Quarter: 2010Q1

REPORT INFORMATION
  Report Type: 
  Country: None (occurrence: None)
  Receive Date: 20100226
  Receipt Date: 20100215
  Transmission Date: 20100710
  Serious: Yes (Death)
  Sender: FDA-Public Use
  Company Number: DSA_42634_2010

PATIENT
  Age: 70 Year
  Sex: Female

DRUGS (4)
  1. ENALAPRIL MALEATE [Suspect]
     Indication: HYPERTENSION
     Dosage: (DF ORAL)
     Route: 048
  2. ATENOLOL [Concomitant]
  3. BENDROFLUMETHIAZIDE [Concomitant]
  4. CAPECITABINE [Concomitant]

REACTIONS (5)
  - ANGIOEDEMA [None]
  - ENDOTRACHEAL INTUBATION COMPLICATION [None]
  - GENERAL PHYSICAL HEALTH DETERIORATION [None]
  - PNEUMOTHORAX [None]
  - PULMONARY EMBOLISM [None]
